FAERS Safety Report 7860088-2 (Version None)
Quarter: 2011Q4

REPORT INFORMATION
  Report Type: 
  Country: None (occurrence: None)
  Receive Date: 20111026
  Receipt Date: 20111011
  Transmission Date: 20120403
  Serious: Yes (Other)
  Sender: FDA-Public Use
  Company Number: 2011-3865

PATIENT
  Age: 40 Year
  Sex: Female
  Weight: 135 kg

DRUGS (3)
  1. SINGULAIR [Concomitant]
  2. DYSPORT [Suspect]
     Indication: OFF LABEL USE
     Dosage: 106 UNITS (106 UNITS, SINGLE CYCLE), INTRADERMAL
     Route: 023
     Dates: start: 20110907, end: 20110907
  3. DYSPORT [Suspect]
     Indication: SKIN WRINKLING
     Dosage: 106 UNITS (106 UNITS, SINGLE CYCLE), INTRADERMAL
     Route: 023
     Dates: start: 20110907, end: 20110907

REACTIONS (2)
  - MUSCULOSKELETAL PAIN [None]
  - NECK PAIN [None]
